APPROVED DRUG PRODUCT: METRONIDAZOLE
Active Ingredient: METRONIDAZOLE
Strength: 500MG/100ML
Dosage Form/Route: INJECTABLE;INJECTION
Application: N018889 | Product #001
Applicant: ABBOTT LABORATORIES PHARMACEUTICAL PRODUCTS DIV
Approved: Nov 18, 1983 | RLD: No | RS: No | Type: DISCN